FAERS Safety Report 5646420-9 (Version None)
Quarter: 2008Q1

REPORT INFORMATION
  Report Type: 
  Country: None (occurrence: None)
  Receive Date: 20080228
  Receipt Date: 20080213
  Transmission Date: 20080703
  Serious: Yes (Other)
  Sender: FDA-Public Use
  Company Number: 230166J08CAN

PATIENT
  Sex: Female

DRUGS (5)
  1. REBIF [Suspect]
     Indication: MULTIPLE SCLEROSIS
     Dates: start: 20010601
  2. CARBAMAZEPINE [Concomitant]
  3. IRBESARTAN [Concomitant]
  4. AMLODIPINE [Concomitant]
  5. ASPIRIN [Concomitant]

REACTIONS (3)
  - HEADACHE [None]
  - HYPERTENSION [None]
  - INJECTION SITE ERYTHEMA [None]
